APPROVED DRUG PRODUCT: PARICALCITOL
Active Ingredient: PARICALCITOL
Strength: 0.01MG/2ML (0.005MG/ML)
Dosage Form/Route: SOLUTION;INTRAVENOUS
Application: A207692 | Product #001
Applicant: EPIC PHARMA LLC
Approved: Oct 16, 2017 | RLD: No | RS: No | Type: DISCN